FAERS Safety Report 25172285 (Version 1)
Quarter: 2025Q2

REPORT INFORMATION
  Report Type: Spontaneous
  Country: US (occurrence: US)
  Receive Date: 20250408
  Receipt Date: 20250408
  Transmission Date: 20250717
  Serious: Yes (Other)
  Sender: SANOFI AVENTIS
  Company Number: US-SA-2025SA099668

PATIENT
  Age: 71 Year
  Sex: Female

DRUGS (27)
  1. DUPIXENT [Suspect]
     Active Substance: DUPILUMAB
     Indication: Dermatitis
     Route: 058
     Dates: start: 20210726
  2. Eviva [Concomitant]
  3. Optase Dry Eye [Concomitant]
  4. ERYTHROMYCIN [Concomitant]
     Active Substance: ERYTHROMYCIN
  5. HYDROXYZINE [Concomitant]
     Active Substance: HYDROXYZINE HYDROCHLORIDE
  6. QUERCETIN [Concomitant]
     Active Substance: QUERCETIN
  7. KETOTIFEN [Concomitant]
     Active Substance: KETOTIFEN
  8. OLEA EUROPAEA LEAF [Concomitant]
     Active Substance: OLEA EUROPAEA LEAF
  9. Prebiotics nos [Concomitant]
  10. TRIAMCINOLONE [Concomitant]
     Active Substance: TRIAMCINOLONE
  11. AMOXICILLIN [Concomitant]
     Active Substance: AMOXICILLIN
  12. MESALAMINE [Concomitant]
     Active Substance: MESALAMINE
  13. PREDNISONE [Concomitant]
     Active Substance: PREDNISONE
  14. ZYRTEC [Concomitant]
     Active Substance: CETIRIZINE HYDROCHLORIDE
  15. SINGULAIR [Concomitant]
     Active Substance: MONTELUKAST SODIUM
  16. ACIDOPHILUS [Concomitant]
     Active Substance: LACTOBACILLUS ACIDOPHILUS
  17. HERBALS\TURMERIC [Concomitant]
     Active Substance: HERBALS\TURMERIC
  18. CLOBETASOL [Concomitant]
     Active Substance: CLOBETASOL
  19. OMEGA-3 ACIDS [Concomitant]
     Active Substance: OMEGA-3 FATTY ACIDS
  20. SYNTHROID [Concomitant]
     Active Substance: LEVOTHYROXINE SODIUM
  21. AZITHROMYCIN [Concomitant]
     Active Substance: AZITHROMYCIN
  22. LIOTHYRONINE SODIUM [Concomitant]
     Active Substance: LIOTHYRONINE SODIUM
  23. ALBUTEROL [Concomitant]
     Active Substance: ALBUTEROL
  24. FLUTICASONE [Concomitant]
     Active Substance: FLUTICASONE
  25. MAGNESIUM [Concomitant]
     Active Substance: MAGNESIUM
  26. AZELASTINE [Concomitant]
     Active Substance: AZELASTINE
  27. VALACYCLOVIR [Concomitant]
     Active Substance: VALACYCLOVIR HYDROCHLORIDE

REACTIONS (4)
  - Neoplasm malignant [Unknown]
  - Injection site pain [Unknown]
  - Peripheral swelling [Unknown]
  - Product use in unapproved indication [Unknown]

NARRATIVE: CASE EVENT DATE: 20210726
